FAERS Safety Report 15599897 (Version 1)
Quarter: 2018Q4

REPORT INFORMATION
  Report Type: Spontaneous
  Country: US (occurrence: US)
  Receive Date: 20181108
  Receipt Date: 20181108
  Transmission Date: 20190205
  Serious: Yes (Death, Congenital Anomaly, Other)
  Sender: FDA-Public Use
  Company Number: US-AMGEN-USASP2018155166

PATIENT
  Age: 0 Year
  Sex: Female

DRUGS (1)
  1. ENBREL [Suspect]
     Active Substance: ETANERCEPT
     Indication: MATERNAL EXPOSURE DURING BREAST FEEDING
     Dosage: UNK UNK, QWK
     Route: 063
     Dates: start: 2004

REACTIONS (3)
  - Death [Fatal]
  - Exposure via breast milk [Unknown]
  - Anencephaly [Unknown]

NARRATIVE: CASE EVENT DATE: 200711
